FAERS Safety Report 10064678 (Version 1)
Quarter: 2014Q2

REPORT INFORMATION
  Report Type: Spontaneous
  Country: US (occurrence: None)
  Receive Date: 20140407
  Receipt Date: 20140407
  Transmission Date: 20141212
  Serious: Yes (Other)
  Sender: FDA-Public Use
  Company Number: None

PATIENT
  Age: 55 Year
  Sex: Female
  Weight: 122.47 kg

DRUGS (1)
  1. MOXIFLOXACIN [Suspect]
     Indication: LUNG INFECTION
     Dosage: ONE PILL, ONCE DAILY, TAKEN BY MOUTH
     Route: 048
     Dates: start: 20140404, end: 20140404

REACTIONS (8)
  - Muscle spasms [None]
  - Vomiting [None]
  - Abasia [None]
  - Headache [None]
  - Pain [None]
  - Myalgia [None]
  - Asthenia [None]
  - Vertigo [None]
